FAERS Safety Report 19241361 (Version 1)
Quarter: 2021Q2

REPORT INFORMATION
  Report Type: Spontaneous
  Country: US (occurrence: US)
  Receive Date: 20210511
  Receipt Date: 20210511
  Transmission Date: 20210717
  Serious: No
  Sender: FDA-Public Use
  Company Number: US-FAGRON STERILE SERVICES-2110417

PATIENT
  Age: 8 Month
  Sex: Male
  Weight: 4.4 kg

DRUGS (1)
  1. ROCURONIUM BROMINDE INJ. 10MG/ML (API) 5ML [Suspect]
     Active Substance: ROCURONIUM BROMIDE
     Dates: start: 20210429, end: 20210429

REACTIONS (1)
  - Drug ineffective [None]
